FAERS Safety Report 8984257 (Version 1)
Quarter: 2012Q4

REPORT INFORMATION
  Report Type: 
  Country: US (occurrence: US)
  Receive Date: 20121226
  Receipt Date: 20121226
  Transmission Date: 20130627
  Serious: Yes (Other)
  Sender: FDA-Public Use
  Company Number: US-AMGEN-USASP2012082266

PATIENT
  Age: 79 Year
  Sex: Male

DRUGS (2)
  1. ENBREL [Suspect]
     Indication: PSORIASIS
     Dosage: UNK mg, qwk
     Dates: start: 20060601, end: 201003
  2. METHOTREXATE [Concomitant]
     Dosage: UNK

REACTIONS (8)
  - Meniere^s disease [Not Recovered/Not Resolved]
  - Cataract [Recovered/Resolved]
  - Tooth infection [Recovered/Resolved]
  - Visual impairment [Recovered/Resolved]
  - Nausea [Recovered/Resolved]
  - Vomiting [Recovered/Resolved]
  - Prostatomegaly [Not Recovered/Not Resolved]
  - Sinusitis [Recovered/Resolved]
